FAERS Safety Report 4672993-9 (Version None)
Quarter: 2005Q2

REPORT INFORMATION
  Report Type: 
  Country: None (occurrence: None)
  Receive Date: 20050524
  Receipt Date: 20050415
  Transmission Date: 20051028
  Serious: Yes (Hospitalization, Disabling, Other)
  Sender: FDA-Public Use
  Company Number: GBWYE589915APR05

PATIENT
  Sex: Male

DRUGS (3)
  1. ENBREL [Suspect]
     Indication: DRUG USE FOR UNKNOWN INDICATION
     Dosage: UNKNOWN
     Route: 058
     Dates: start: 20040101, end: 20050201
  2. HUMIRA [Suspect]
     Dosage: UNKNOWN
     Dates: start: 20050201, end: 20050420
  3. PREDNISOLONE [Concomitant]

REACTIONS (5)
  - DEEP VEIN THROMBOSIS [None]
  - EPISCLERITIS [None]
  - ISCHAEMIA [None]
  - OPTIC NEURITIS [None]
  - TEMPORAL ARTERITIS [None]
